FAERS Safety Report 16686395 (Version 1)
Quarter: 2019Q3

REPORT INFORMATION
  Report Type: Spontaneous
  Country: FR (occurrence: FR)
  Receive Date: 20190809
  Receipt Date: 20190809
  Transmission Date: 20191004
  Serious: Yes (Other)
  Sender: FDA-Public Use
  Company Number: FR-TEVA-2019-FR-1090290

PATIENT
  Age: 71 Year
  Sex: Female

DRUGS (12)
  1. PHYSIOTENS [Concomitant]
     Active Substance: MOXONIDINE
     Dosage: 0.4 MG, UNK
  2. TEMERIT [Suspect]
     Active Substance: NEBIVOLOL
     Dosage: UNK UNK, UNK
     Route: 048
  3. VITAMIN B12 [Concomitant]
     Active Substance: CYANOCOBALAMIN
     Dosage: UNK
  4. MELATONIN [Suspect]
     Active Substance: MELATONIN
     Dosage: UNK UNK, UNK
     Route: 065
  5. GELSEMIUM [Concomitant]
     Active Substance: GELSEMIUM SEMPERVIRENS ROOT
     Dosage: UNK
  6. MAGNESIUM [Concomitant]
     Active Substance: MAGNESIUM
     Dosage: UNK
  7. ALTIZIDE, SPIRONOLACTONE [Suspect]
     Active Substance: ALTHIAZIDE\SPIRONOLACTONE
     Dosage: UNK UNK, UNK
     Route: 048
  8. TURMERIC [CURCUMA LONGA RHIZOME] [Concomitant]
     Active Substance: HERBALS\TURMERIC
     Dosage: UNK
  9. VALERIANA OFFICINALIS ROOT [Concomitant]
     Active Substance: VALERIAN
     Dosage: UNK
  10. SPIRONOLACTONE. [Suspect]
     Active Substance: SPIRONOLACTONE
     Dosage: UNK UNK, UNK
     Route: 065
  11. TRIATEC (RAMIPRIL) [Suspect]
     Active Substance: RAMIPRIL
     Indication: HYPERTENSION
     Dosage: UNK UNK, UNK
     Route: 048
  12. VITAMIN D [VITAMIN D NOS] [Concomitant]
     Active Substance: VITAMIN D NOS
     Dosage: UNK

REACTIONS (9)
  - Acne [Unknown]
  - Rash [Unknown]
  - Headache [Unknown]
  - Hypotension [Unknown]
  - Sleep apnoea syndrome [Unknown]
  - Malaise [Unknown]
  - Myocardial infarction [Unknown]
  - Drug intolerance [Unknown]
  - Insomnia [Unknown]
